FAERS Safety Report 5044740-2 (Version None)
Quarter: 2006Q3

REPORT INFORMATION
  Report Type: 
  Country: None (occurrence: None)
  Receive Date: 20060705
  Receipt Date: 20060622
  Transmission Date: 20061208
  Serious: Yes (Hospitalization, Other)
  Sender: FDA-Public Use
  Company Number: 200612489BWH

PATIENT
  Age: 80 Year
  Sex: Male
  Weight: 65.7716 kg

DRUGS (14)
  1. NEXAVAR [Suspect]
     Indication: RENAL CELL CARCINOMA STAGE UNSPECIFIED
     Dosage: SEE IMAGE
     Route: 048
     Dates: start: 20060201, end: 20060101
  2. NEXAVAR [Suspect]
     Indication: RENAL CELL CARCINOMA STAGE UNSPECIFIED
     Dosage: SEE IMAGE
     Route: 048
     Dates: start: 20060622
  3. LASIX [Concomitant]
  4. INTERFERON [Concomitant]
  5. COREG [Concomitant]
  6. ASPIRIN [Concomitant]
  7. ALLOPURINOL [Concomitant]
  8. LEVOXYL [Concomitant]
  9. POTASSIUM [Concomitant]
  10. AMIODARONE HCL [Concomitant]
  11. PROSCAR [Concomitant]
  12. PLAVIX [Concomitant]
  13. INSULIN [Concomitant]
  14. AMBIEN [Concomitant]

REACTIONS (6)
  - CARDIAC FAILURE CONGESTIVE [None]
  - DEHYDRATION [None]
  - FALL [None]
  - MYOCARDIAL INFARCTION [None]
  - RIB FRACTURE [None]
  - SYNCOPE [None]
